FAERS Safety Report 14092535 (Version 1)
Quarter: 2017Q4

REPORT INFORMATION
  Report Type: Spontaneous
  Country: US (occurrence: US)
  Receive Date: 20171016
  Receipt Date: 20171016
  Transmission Date: 20180321
  Serious: Yes (Death, Life-Threatening, Hospitalization, Other)
  Sender: FDA-Public Use
  Company Number: US-ALEMBIC PHARMACUETICALS LIMITED-2017SCAL000815

PATIENT

DRUGS (4)
  1. QUETIAPINE FUMARATE. [Suspect]
     Active Substance: QUETIAPINE FUMARATE
     Indication: SCHIZOPHRENIA
     Dosage: UNK
  2. CLOZAPINE. [Suspect]
     Active Substance: CLOZAPINE
     Dosage: 100 MG, EVERY 12 HOURS
  3. QUETIAPINE FUMARATE. [Suspect]
     Active Substance: QUETIAPINE FUMARATE
     Dosage: SINGLE DOSE OF 400 MG, UNK
  4. CLOZAPINE. [Suspect]
     Active Substance: CLOZAPINE
     Indication: SCHIZOPHRENIA
     Dosage: UNK

REACTIONS (15)
  - Septic shock [Fatal]
  - Abdominal distension [Fatal]
  - Bacterial infection [Fatal]
  - Aspiration [Recovering/Resolving]
  - Faecal vomiting [Fatal]
  - Gastrointestinal necrosis [Fatal]
  - Faecaloma [Fatal]
  - Shock [Recovering/Resolving]
  - Haematemesis [Fatal]
  - Acute respiratory distress syndrome [Recovering/Resolving]
  - Mental status changes [Unknown]
  - Constipation [Recovered/Resolved]
  - Gastric ulcer [Fatal]
  - Oesophageal ulcer [Fatal]
  - Duodenal ulcer [Fatal]
